FAERS Safety Report 9235194 (Version 2)
Quarter: 2013Q2

REPORT INFORMATION
  Report Type: Spontaneous
  Country: IN (occurrence: IN)
  Receive Date: 20130417
  Receipt Date: 20130426
  Transmission Date: 20140414
  Serious: Yes (Other)
  Sender: FDA-Public Use
  Company Number: IN-RANBAXY-2013RR-67256

PATIENT
  Age: 74 Year
  Sex: Female
  Weight: 60 kg

DRUGS (14)
  1. DONEPEZIL [Suspect]
     Indication: DEMENTIA ALZHEIMER^S TYPE
     Dosage: 5 MG, QD
     Route: 048
  2. MORPHINE [Interacting]
     Indication: INDUCTION OF ANAESTHESIA
     Dosage: 3 MG, UNK
     Route: 042
  3. PROPOFOL [Interacting]
     Indication: INDUCTION OF ANAESTHESIA
     Dosage: 100 MG, UNK
     Route: 042
  4. PROPOFOL [Interacting]
     Indication: ENDOTRACHEAL INTUBATION
     Dosage: 20 MG
     Route: 040
  5. ROCURONIUM [Interacting]
     Indication: INDUCTION OF ANAESTHESIA
     Dosage: 0.6 MG/KG, UNK
     Route: 042
  6. ROCURONIUM [Interacting]
     Indication: ENDOTRACHEAL INTUBATION
     Dosage: 10 MG, UNK
     Route: 042
  7. ROCURONIUM [Interacting]
     Indication: MAINTENANCE OF ANAESTHESIA
     Dosage: UNK
     Route: 042
  8. VECURONIUM [Interacting]
     Indication: MAINTENANCE OF ANAESTHESIA
     Dosage: UNK
     Route: 065
  9. ISOFLURANE [Interacting]
     Indication: MAINTENANCE OF ANAESTHESIA
     Dosage: UNK
     Route: 065
  10. PROPOFOL [Concomitant]
     Indication: INDUCTION OF ANAESTHESIA
     Dosage: 40 MG, UNK
     Route: 042
  11. SUCCINYLCHOLINE [Concomitant]
     Indication: INDUCTION OF ANAESTHESIA
     Dosage: 12.5 MG, UNK
     Route: 042
  12. METFORMIN [Concomitant]
     Indication: TYPE 2 DIABETES MELLITUS
     Dosage: 500 MG, BID
     Route: 048
  13. GLIMEPIRIDE [Concomitant]
     Indication: TYPE 2 DIABETES MELLITUS
     Dosage: 2 MG, QD
     Route: 065
  14. INSULIN [Concomitant]
     Indication: TYPE 2 DIABETES MELLITUS
     Dosage: INFUSION
     Route: 042

REACTIONS (3)
  - Drug effect decreased [Unknown]
  - Delayed recovery from anaesthesia [Unknown]
  - Drug interaction [Unknown]
